FAERS Safety Report 6620685-9 (Version None)
Quarter: 2010Q1

REPORT INFORMATION
  Report Type: 
  Country: None (occurrence: None)
  Receive Date: 20100309
  Receipt Date: 20091218
  Transmission Date: 20100710
  Serious: Yes (Congenital Anomaly, Other)
  Sender: FDA-Public Use
  Company Number: FR-PFIZER INC-2008029760

PATIENT
  Sex: Female
  Weight: 2.7 kg

DRUGS (11)
  1. NELFINAVIR MESILATE [Suspect]
     Indication: HIV INFECTION
     Dosage: UNK
     Route: 064
     Dates: start: 20060102
  2. ZIDOVUDINE [Suspect]
     Indication: HIV INFECTION
     Dosage: UNK
     Route: 064
     Dates: start: 20060102
  3. COMBIVIR [Suspect]
     Indication: HIV INFECTION
  4. LAMIVUDINE [Suspect]
     Indication: HIV INFECTION
     Dosage: UNK
     Route: 064
     Dates: start: 20060102
  5. VALACICLOVIR [Suspect]
     Dates: start: 20060915, end: 20061019
  6. AMOXICILLIN [Concomitant]
  7. AMYLASE [Concomitant]
  8. PARACETAMOL [Concomitant]
  9. ALUMINUM HYDROXIDE AND MAGNESIUM TRISILICATE [Concomitant]
  10. LOCABIOTAL [Concomitant]
  11. IRON [Concomitant]

REACTIONS (9)
  - BRAIN MALFORMATION [None]
  - CLEFT PALATE [None]
  - DRUG EXPOSURE DURING PREGNANCY [None]
  - FEEDING DISORDER NEONATAL [None]
  - FOETAL GROWTH RETARDATION [None]
  - HYPOTONIA NEONATAL [None]
  - PIERRE ROBIN SYNDROME [None]
  - RETROGNATHIA [None]
  - VENTRICULAR HYPERTROPHY [None]
